FAERS Safety Report 7951092-4 (Version None)
Quarter: 2011Q4

REPORT INFORMATION
  Report Type: 
  Country: None (occurrence: None)
  Receive Date: 20111201
  Receipt Date: 20111118
  Transmission Date: 20120403
  Serious: Yes (Hospitalization, Disabling, Other)
  Sender: FDA-Public Use
  Company Number: US-ELI_LILLY_AND_COMPANY-US201111006350

PATIENT
  Sex: Female
  Weight: 77.098 kg

DRUGS (7)
  1. PROVIGIL [Concomitant]
     Indication: SLEEP APNOEA SYNDROME
     Dosage: 400 MG, QD
     Route: 048
     Dates: start: 20101101, end: 20111001
  2. ABILIFY [Concomitant]
     Dosage: 30 MG, UNK
     Dates: end: 20111001
  3. NEURONTIN [Concomitant]
     Dosage: UNK
  4. RELAFEN [Concomitant]
     Dosage: UNK
  5. CRESTOR [Concomitant]
     Dosage: UNK
  6. CYMBALTA [Suspect]
     Dosage: 120 MG, UNK
     Dates: end: 20111001
  7. THYROID TAB [Concomitant]
     Dosage: UNK

REACTIONS (2)
  - MOUTH ULCERATION [None]
  - CONVERSION DISORDER [None]
